FAERS Safety Report 16293730 (Version 4)
Quarter: 2019Q2

REPORT INFORMATION
  Report Type: Other
  Country: US (occurrence: US)
  Receive Date: 20190509
  Receipt Date: 20190607
  Transmission Date: 20190711
  Serious: Yes (Hospitalization, Other)
  Sender: FDA-Public Use
  Company Number: US-AMAG PHARMACEUTICALS, INC.-AMAG201902420

PATIENT
  Age: 38 Year
  Sex: Female
  Weight: 75.82 kg

DRUGS (8)
  1. CHOLECALCIFEROL (VITAMIN D3) [Concomitant]
     Indication: PRODUCT USED FOR UNKNOWN INDICATION
     Route: 048
     Dates: start: 20190404
  2. NICODERM CQ [Concomitant]
     Active Substance: NICOTINE
     Indication: TOBACCO ABUSE
     Dosage: 21 MG/24 HOUR PATCH
     Route: 062
     Dates: start: 20190129
  3. LABETALOL HCL [Concomitant]
     Active Substance: LABETALOL HYDROCHLORIDE
     Indication: HYPERTENSION
     Route: 048
     Dates: start: 20190404
  4. PNV NO.122/IRON/FOLIC ACID [Concomitant]
     Indication: PRODUCT USED FOR UNKNOWN INDICATION
     Dosage: 1 EACH TABLET
     Route: 048
     Dates: start: 20181228
  5. FOLIC ACID. [Concomitant]
     Active Substance: FOLIC ACID
     Indication: PRODUCT USED FOR UNKNOWN INDICATION
     Route: 048
     Dates: start: 20190404
  6. COMPOUNDED HCP [HYDROXYPROGESTERONE CAPROATE] [Suspect]
     Active Substance: HYDROXYPROGESTERONE CAPROATE
     Indication: PREMATURE DELIVERY
     Route: 030
     Dates: start: 20190410, end: 20190410
  7. MAKENA [Suspect]
     Active Substance: HYDROXYPROGESTERONE CAPROATE
     Indication: PREMATURE DELIVERY
     Route: 058
     Dates: end: 20190329
  8. PROCHLORPERAZINE MALEATE. [Concomitant]
     Active Substance: PROCHLORPERAZINE MALEATE
     Indication: PRODUCT USED FOR UNKNOWN INDICATION
     Dosage: TAKEN EVERY 8-12 HOURS
     Route: 048
     Dates: start: 20181228

REACTIONS (6)
  - Nausea [Not Recovered/Not Resolved]
  - Transaminases increased [Unknown]
  - Pruritus [Unknown]
  - Shortened cervix [Unknown]
  - Acute hepatitis C [Unknown]
  - Rash generalised [Unknown]

NARRATIVE: CASE EVENT DATE: 20190329
